FAERS Safety Report 5607040-5 (Version None)
Quarter: 2008Q1

REPORT INFORMATION
  Report Type: 
  Country: None (occurrence: None)
  Receive Date: 20080129
  Receipt Date: 20080117
  Transmission Date: 20080703
  Serious: Yes (Hospitalization)
  Sender: FDA-Public Use
  Company Number: JP-PFIZER INC-2008005995

PATIENT
  Sex: Male
  Weight: 75.2 kg

DRUGS (2)
  1. BLINDED PREGABALIN (CI-1008) [Suspect]
     Indication: DIABETIC NEUROPATHY
     Route: 048
     Dates: start: 20071211, end: 20080117
  2. NOVOLIN N [Concomitant]
     Route: 058

REACTIONS (1)
  - ATRIAL FIBRILLATION [None]
